FAERS Safety Report 15661029 (Version 1)
Quarter: 2018Q4

REPORT INFORMATION
  Report Type: Spontaneous
  Country: US (occurrence: US)
  Receive Date: 20181127
  Receipt Date: 20181127
  Transmission Date: 20190205
  Serious: Yes (Other)
  Sender: FDA-Public Use
  Company Number: US-ALEXION PHARMACEUTICALS INC.-A201815068

PATIENT
  Age: 18 Year
  Sex: Male

DRUGS (3)
  1. SOLIRIS [Suspect]
     Active Substance: ECULIZUMAB
     Indication: GLOMERULONEPHRITIS MEMBRANOPROLIFERATIVE
     Dosage: UNK
     Route: 065
  2. SOLIRIS [Suspect]
     Active Substance: ECULIZUMAB
     Indication: OFF LABEL USE
  3. RITUXIMAB. [Concomitant]
     Active Substance: RITUXIMAB
     Indication: PROTEINURIA
     Dosage: UNK
     Route: 065

REACTIONS (4)
  - Chronic kidney disease [Unknown]
  - Fibrosis [Unknown]
  - Off label use [Unknown]
  - C3 glomerulopathy [Unknown]
